FAERS Safety Report 6129122-4 (Version None)
Quarter: 2009Q1

REPORT INFORMATION
  Report Type: 
  Country: None (occurrence: None)
  Receive Date: 20090320
  Receipt Date: 20090318
  Transmission Date: 20090719
  Serious: Yes (Life-Threatening)
  Sender: FDA-Public Use
  Company Number: GXKR2009DE03320

PATIENT
  Age: 78 Year
  Sex: Male
  Weight: 79 kg

DRUGS (10)
  1. ZOP (NGX) (ZOPICLONE) FILM-COATED TABLET [Suspect]
     Indication: RESTLESSNESS
     Dosage: 7.5 MG, QD, ORAL
     Route: 048
     Dates: start: 20090102, end: 20090102
  2. ZOLPIDEM [Suspect]
     Indication: SLEEP DISORDER
     Dosage: 10 MG, QD, ORAL
     Route: 048
     Dates: start: 20050101, end: 20090101
  3. CORDAREX (AMIODARONE HYDROCHLORIDE) 200MG [Suspect]
     Indication: ATRIAL FIBRILLATION
     Dosage: 200 MG, QD, ORAL
     Route: 048
     Dates: start: 19980101, end: 20090102
  4. TRAMADOL HYDROHLORIDE [Suspect]
     Indication: PAIN
     Dosage: 50 MG, QD, ORAL
     Route: 048
     Dates: start: 20080901, end: 20090101
  5. METOPROLOL SUCCINATE [Concomitant]
  6. BIFITERAL ^PHILIPS^ (LACTULOSE) [Concomitant]
  7. FALITHROM ^FAHLBERG^ (PHENPROCOUMON) [Concomitant]
  8. SIMVASTATIN [Concomitant]
  9. TORSEMIDE [Concomitant]
  10. XIPAMIDE (XIPAMIDE) [Concomitant]

REACTIONS (2)
  - ACUTE RESPIRATORY FAILURE [None]
  - DRUG INTERACTION [None]
